FAERS Safety Report 9383089 (Version 1)
Quarter: 2013Q3

REPORT INFORMATION
  Report Type: Spontaneous
  Country: US (occurrence: US)
  Receive Date: 20130704
  Receipt Date: 20130704
  Transmission Date: 20140515
  Serious: Yes (Life-Threatening, Hospitalization)
  Sender: FDA-Public Use
  Company Number: US-JNJFOC-20130700047

PATIENT
  Age: 32 Year
  Sex: Female

DRUGS (3)
  1. TYLENOL COLD AND SINUS [Suspect]
     Indication: SINUS CONGESTION
     Route: 065
  2. TYLENOL COLD AND SINUS [Suspect]
     Indication: BACK PAIN
     Route: 065
  3. VICODIN [Suspect]
     Indication: PAIN
     Route: 065

REACTIONS (16)
  - Acute hepatic failure [Unknown]
  - Renal failure acute [Unknown]
  - Brain oedema [Unknown]
  - Overdose [Unknown]
  - Back pain [Unknown]
  - Nausea [Unknown]
  - Vomiting [Unknown]
  - Decreased appetite [Unknown]
  - Mental status changes [Unknown]
  - International normalised ratio increased [Unknown]
  - Tachycardia [Unknown]
  - Anuria [Unknown]
  - Hypotension [Unknown]
  - Convulsion [Unknown]
  - Pancreatitis [Unknown]
  - Leukocytosis [Unknown]
